FAERS Safety Report 5950681-6 (Version None)
Quarter: 2008Q4

REPORT INFORMATION
  Report Type: 
  Country: None (occurrence: None)
  Receive Date: 20081112
  Receipt Date: 20081030
  Transmission Date: 20090506
  Serious: Yes (Hospitalization)
  Sender: FDA-Public Use
  Company Number: DE-GENENTECH-229759

PATIENT
  Sex: Female

DRUGS (14)
  1. BLINDED BEVACIZUMAB [Suspect]
     Indication: PANCREATIC CARCINOMA METASTATIC
     Dosage: 5 MG/KG, Q2W
     Route: 042
     Dates: start: 20060705, end: 20060705
  2. BLINDED PLACEBO [Suspect]
     Indication: PANCREATIC CARCINOMA METASTATIC
     Dosage: 5 MG/KG, Q2W
     Route: 042
     Dates: start: 20060705, end: 20060705
  3. ERLOTINIB [Suspect]
     Indication: PANCREATIC CARCINOMA METASTATIC
     Dosage: 100 MG, QD
     Route: 048
     Dates: start: 20060705
  4. GEMCITABINE HCL [Suspect]
     Indication: PANCREATIC CARCINOMA METASTATIC
     Dosage: 1762 MG, 1/WEEK
     Route: 042
     Dates: start: 20060705
  5. ASS (GERMANY) [Concomitant]
     Indication: DRUG USE FOR UNKNOWN INDICATION
  6. NEXIUM [Concomitant]
     Indication: DRUG USE FOR UNKNOWN INDICATION
  7. SIMVASTATIN [Concomitant]
     Indication: DRUG USE FOR UNKNOWN INDICATION
  8. XANEF [Concomitant]
     Indication: DRUG USE FOR UNKNOWN INDICATION
  9. UNAT [Concomitant]
     Indication: DRUG USE FOR UNKNOWN INDICATION
  10. SPIRONOLACTONE [Concomitant]
     Indication: DRUG USE FOR UNKNOWN INDICATION
  11. LEVOTHYROXINE SODIUM [Concomitant]
     Indication: DRUG USE FOR UNKNOWN INDICATION
  12. FENTANYL [Concomitant]
     Indication: DRUG USE FOR UNKNOWN INDICATION
  13. ACTRAPID [Concomitant]
     Indication: DRUG USE FOR UNKNOWN INDICATION
  14. LANTUS [Concomitant]
     Indication: DRUG USE FOR UNKNOWN INDICATION

REACTIONS (2)
  - ANAEMIA [None]
  - EPISTAXIS [None]
